FAERS Safety Report 12355050 (Version 1)
Quarter: 2016Q2

REPORT INFORMATION
  Report Type: Spontaneous
  Country: US (occurrence: US)
  Receive Date: 20160511
  Receipt Date: 20160511
  Transmission Date: 20160815
  Serious: No
  Sender: FDA-Public Use
  Company Number: US-ACTAVIS-2015-16644

PATIENT
  Age: 10 Month
  Sex: Male
  Weight: 9.55 kg

DRUGS (1)
  1. IBUPROFEN OTC BERRY (AMALLC) [Suspect]
     Active Substance: IBUPROFEN
     Indication: PRODUCT USED FOR UNKNOWN INDICATION
     Dosage: UNK, UNKNOWN
     Route: 048
     Dates: start: 20150731, end: 20150731

REACTIONS (2)
  - Dyspnoea [Recovered/Resolved]
  - Cough [Not Recovered/Not Resolved]
